FAERS Safety Report 9688197 (Version 1)
Quarter: 2013Q4

REPORT INFORMATION
  Report Type: Spontaneous
  Country: US (occurrence: None)
  Receive Date: 20131113
  Receipt Date: 20131113
  Transmission Date: 20140711
  Serious: Yes (Hospitalization)
  Sender: FDA-Public Use
  Company Number: None

PATIENT
  Age: 33 None
  Sex: Female

DRUGS (3)
  1. CIPRO [Suspect]
     Indication: BARTONELLOSIS
     Dates: start: 20120803, end: 20120805
  2. DOXYCYCLINE [Suspect]
     Indication: URINARY TRACT INFECTION
     Dates: start: 20120730, end: 20120806
  3. MACROBID [Suspect]
     Indication: URINARY TRACT INFECTION
     Dates: start: 20120801, end: 20120803

REACTIONS (8)
  - Abdominal pain [None]
  - Confusional state [None]
  - Convulsion [None]
  - Hepatic steatosis [None]
  - Cholelithiasis [None]
  - Aspartate aminotransferase increased [None]
  - Alanine aminotransferase increased [None]
  - Myoclonus [None]
